FAERS Safety Report 6851074-X (Version None)
Quarter: 2010Q3

REPORT INFORMATION
  Report Type: 
  Country: None (occurrence: None)
  Receive Date: 20100716
  Receipt Date: 20071026
  Transmission Date: 20110219
  Serious: Yes (Other)
  Sender: FDA-Public Use
  Company Number: US-PFIZER INC-2007091399

PATIENT
  Sex: Female

DRUGS (2)
  1. CHANTIX [Suspect]
  2. CARDIAC THERAPY [Concomitant]

REACTIONS (2)
  - HEART RATE DECREASED [None]
  - HYPERTENSION [None]
